FAERS Safety Report 11575039 (Version 1)
Quarter: 2015Q3

REPORT INFORMATION
  Report Type: Spontaneous
  Country: US (occurrence: None)
  Receive Date: 20150929
  Receipt Date: 20150929
  Transmission Date: 20151125
  Serious: Yes (Disabling)
  Sender: FDA-Public Use
  Company Number: None

PATIENT
  Age: 68 Year
  Sex: Female

DRUGS (9)
  1. CHLORHEXIDINE TOPICAL [Concomitant]
  2. PROCHLORPERAZINE 10 MG [Concomitant]
  3. DEXAMETHASONE. [Concomitant]
     Active Substance: DEXAMETHASONE
  4. FLUCONAZOLE 100MG [Concomitant]
     Active Substance: FLUCONAZOLE
  5. N-ACETYLCYSTEINE/PLACEBO [Suspect]
     Active Substance: ACETYLCYSTEINE
     Indication: MUCOSAL INFLAMMATION
     Dosage: 5 TIMES DAILY GARGLE/SWISH
     Dates: start: 20150904, end: 20150925
  6. TYLENOL [Concomitant]
     Active Substance: ACETAMINOPHEN
  7. LORAZEPAM 1 MG [Concomitant]
     Active Substance: LORAZEPAM
  8. ZOFRAN 8 MG [Concomitant]
  9. POTASSIUM/MAGNESIUM SUPPLEMENTS [Concomitant]

REACTIONS (1)
  - Dysphagia [None]

NARRATIVE: CASE EVENT DATE: 20150917
